FAERS Safety Report 8521024-9 (Version None)
Quarter: 2012Q3

REPORT INFORMATION
  Report Type: 
  Country: None (occurrence: None)
  Receive Date: 20120719
  Receipt Date: 20120718
  Transmission Date: 20120928
  Serious: No
  Sender: FDA-Public Use
  Company Number: US-BAYER-2012-059767

PATIENT
  Age: 20 Year
  Sex: Female

DRUGS (2)
  1. MIRENA [Suspect]
     Indication: CONTRACEPTION
     Dosage: 20 ?G/D, CONT
     Route: 015
     Dates: start: 20120410, end: 20120420
  2. MIRENA [Suspect]
     Dosage: 20 ?G/D, CONT
     Route: 015
     Dates: start: 20120420

REACTIONS (1)
  - DEVICE EXPULSION [None]
